FAERS Safety Report 8072467-1 (Version None)
Quarter: 2012Q1

REPORT INFORMATION
  Report Type: 
  Country: None (occurrence: None)
  Receive Date: 20120126
  Receipt Date: 20120119
  Transmission Date: 20120608
  Serious: Yes (Other)
  Sender: FDA-Public Use
  Company Number: JP-PFIZER INC-2011299065

PATIENT
  Age: 71 Year
  Sex: Male

DRUGS (2)
  1. VFEND [Suspect]
     Indication: ASPERGILLOSIS
     Dosage: 200 MG/DAY
     Route: 042
  2. VFEND [Suspect]
     Dosage: UNK
     Route: 048

REACTIONS (2)
  - DYSPNOEA [None]
  - ORGANISING PNEUMONIA [None]
